FAERS Safety Report 11860908 (Version 1)
Quarter: 2015Q4

REPORT INFORMATION
  Report Type: Spontaneous
  Country: FR (occurrence: FR)
  Receive Date: 20151222
  Receipt Date: 20151222
  Transmission Date: 20160305
  Serious: Yes (Death)
  Sender: FDA-Public Use
  Company Number: FR-FRESENIUS KABI-FK201506753

PATIENT
  Age: 71 Year
  Sex: Female

DRUGS (9)
  1. BRILIQUE [Concomitant]
     Active Substance: TICAGRELOR
  2. PHOSPHOSORB [Concomitant]
  3. BISOPROLOL [Concomitant]
     Active Substance: BISOPROLOL
  4. KARDEGIC [Concomitant]
     Active Substance: ASPIRIN LYSINE
  5. TAHOR [Concomitant]
     Active Substance: ATORVASTATIN CALCIUM
  6. UVEDOSE [Concomitant]
     Active Substance: CHOLECALCIFEROL
  7. LASILIX [Concomitant]
     Active Substance: FUROSEMIDE
  8. LEVOCARNIL [Concomitant]
     Active Substance: LEVOCARNITINE
  9. PACLITAXEL 6MG/ML CONCENTRATE FOR SOLUTION FOR INFUSION [Suspect]
     Active Substance: PACLITAXEL
     Indication: FALLOPIAN TUBE CANCER
     Route: 042
     Dates: start: 20150625, end: 20150917

REACTIONS (1)
  - Posterior reversible encephalopathy syndrome [Fatal]

NARRATIVE: CASE EVENT DATE: 20150926
